FAERS Safety Report 14414788 (Version 1)
Quarter: 2018Q1

REPORT INFORMATION
  Report Type: Spontaneous
  Country: CA (occurrence: CA)
  Receive Date: 20180120
  Receipt Date: 20180120
  Transmission Date: 20180509
  Serious: Yes (Life-Threatening, Hospitalization, Other)
  Sender: FDA-Public Use
  Company Number: CA-GLENMARK PHARMACEUTICALS-2018GMK030687

PATIENT
  Age: 22 Year
  Sex: Female

DRUGS (2)
  1. LEVONORGESTREL. [Suspect]
     Active Substance: LEVONORGESTREL
     Indication: MENORRHAGIA
     Dosage: UNK
     Route: 015
  2. RIVAROXABAN [Concomitant]
     Active Substance: RIVAROXABAN
     Indication: INTERNATIONAL NORMALISED RATIO ABNORMAL
     Dosage: 20 MG, OD
     Route: 048

REACTIONS (1)
  - Drug ineffective [Unknown]
